FAERS Safety Report 14006456 (Version 1)
Quarter: 2017Q3

REPORT INFORMATION
  Report Type: Spontaneous
  Country: CA (occurrence: CA)
  Receive Date: 20170925
  Receipt Date: 20170925
  Transmission Date: 20171128
  Serious: Yes (Other)
  Sender: FDA-Public Use
  Company Number: CA-ROCHE-1991392

PATIENT
  Sex: Female
  Weight: 61.24 kg

DRUGS (1)
  1. ACTEMRA [Suspect]
     Active Substance: TOCILIZUMAB
     Indication: RHEUMATOID ARTHRITIS
     Route: 065
     Dates: start: 201611

REACTIONS (2)
  - Rheumatoid arthritis [Not Recovered/Not Resolved]
  - Drug ineffective [Unknown]
